FAERS Safety Report 25356162 (Version 2)
Quarter: 2025Q2

REPORT INFORMATION
  Report Type: Spontaneous
  Country: JP (occurrence: JP)
  Receive Date: 20250525
  Receipt Date: 20250613
  Transmission Date: 20250716
  Serious: Yes (Other)
  Sender: MERCK SHARP & DOHME LLC
  Company Number: JP-MSD-M2024-31465

PATIENT
  Age: 44 Year
  Sex: Female

DRUGS (4)
  1. KEYTRUDA [Suspect]
     Active Substance: PEMBROLIZUMAB
     Indication: Cervix carcinoma recurrent
     Route: 041
     Dates: start: 202405, end: 20250110
  2. AVASTIN [Suspect]
     Active Substance: BEVACIZUMAB
     Indication: Cervix carcinoma recurrent
     Dates: start: 202405, end: 2024
  3. CARBOPLATIN [Concomitant]
     Active Substance: CARBOPLATIN
     Indication: Cervix carcinoma recurrent
     Dates: start: 202405
  4. PACLITAXEL [Concomitant]
     Active Substance: PACLITAXEL
     Indication: Cervix carcinoma recurrent
     Dates: start: 202405

REACTIONS (5)
  - Urogenital fistula [Not Recovered/Not Resolved]
  - Urinary fistula [Not Recovered/Not Resolved]
  - Urinary tract infection [Recovered/Resolved]
  - Urinary tract infection [Unknown]
  - Malignant neoplasm progression [Unknown]

NARRATIVE: CASE EVENT DATE: 20240701
